FAERS Safety Report 11572324 (Version 1)
Quarter: 2015Q3

REPORT INFORMATION
  Report Type: Spontaneous
  Country: None (occurrence: FR)
  Receive Date: 20150929
  Receipt Date: 20150929
  Transmission Date: 20151125
  Serious: Yes (Other)
  Sender: FDA-Public Use
  Company Number: FR-MEDAC PHARMA, INC.-1042393

PATIENT
  Age: 57 Year
  Sex: Male

DRUGS (13)
  1. UROREC [Concomitant]
     Active Substance: SILODOSIN
  2. REPAGLINIDE. [Concomitant]
     Active Substance: REPAGLINIDE
  3. TRAMADOL HYDROCHLORIDE. [Concomitant]
     Active Substance: TRAMADOL HYDROCHLORIDE
  4. METOJECT [Suspect]
     Active Substance: METHOTREXATE SODIUM
     Indication: PRIMARY PROGRESSIVE MULTIPLE SCLEROSIS
     Route: 058
     Dates: start: 201411, end: 20150824
  5. LEVEMIR [Concomitant]
     Active Substance: INSULIN DETEMIR
  6. COVERAM [Concomitant]
     Active Substance: AMLODIPINE\PERINDOPRIL
  7. DOMPERIDONE [Concomitant]
     Active Substance: DOMPERIDONE
  8. EMEND [Concomitant]
     Active Substance: APREPITANT
  9. METFORMIN HYDROCHLORIDE. [Concomitant]
     Active Substance: METFORMIN HYDROCHLORIDE
  10. ONDANSETRON [Concomitant]
     Active Substance: ONDANSETRON
     Route: 042
     Dates: start: 20150728, end: 20150824
  11. CYMBALTA [Concomitant]
     Active Substance: DULOXETINE HYDROCHLORIDE
  12. CYCLOPHOSPHAMIDE. [Suspect]
     Active Substance: CYCLOPHOSPHAMIDE
     Route: 042
     Dates: start: 20150728, end: 20150824
  13. HUMALOG [Concomitant]
     Active Substance: INSULIN LISPRO

REACTIONS (4)
  - Night sweats [Recovered/Resolved]
  - Product use issue [None]
  - Weight decreased [Not Recovered/Not Resolved]
  - Vomiting [Recovered/Resolved]

NARRATIVE: CASE EVENT DATE: 201411
